FAERS Safety Report 8624665-3 (Version None)
Quarter: 2012Q3

REPORT INFORMATION
  Report Type: 
  Country: None (occurrence: None)
  Receive Date: 20120810
  Receipt Date: 20120725
  Transmission Date: 20120928
  Serious: Yes (Death, Hospitalization, Other)
  Sender: FDA-Public Use
  Company Number: 2012MA009293

PATIENT
  Age: 29 Year
  Sex: Female

DRUGS (3)
  1. ALCOHOL [Concomitant]
  2. FEVERALL [Suspect]
     Dosage: 36 G
  3. DIAZEPAM [Concomitant]

REACTIONS (22)
  - TOXICITY TO VARIOUS AGENTS [None]
  - ACUTE HEPATIC FAILURE [None]
  - HEART RATE INCREASED [None]
  - BLOOD BILIRUBIN INCREASED [None]
  - PULMONARY OEDEMA [None]
  - DEPRESSED LEVEL OF CONSCIOUSNESS [None]
  - RENAL TUBULAR NECROSIS [None]
  - ASPARTATE AMINOTRANSFERASE INCREASED [None]
  - NERVOUS SYSTEM DISORDER [None]
  - HEPATOTOXICITY [None]
  - EMOTIONAL DISTRESS [None]
  - BRAIN OEDEMA [None]
  - INCORRECT DOSE ADMINISTERED [None]
  - BLOOD LACTATE DEHYDROGENASE INCREASED [None]
  - RESPIRATORY RATE INCREASED [None]
  - URINARY CASTS PRESENT [None]
  - METABOLIC ACIDOSIS [None]
  - BLOOD CREATINE INCREASED [None]
  - HEPATIC FAILURE [None]
  - COAGULOPATHY [None]
  - HYPOGLYCAEMIA [None]
  - RENAL FAILURE [None]
